FAERS Safety Report 6425264-4 (Version None)
Quarter: 2009Q4

REPORT INFORMATION
  Report Type: 
  Country: None (occurrence: None)
  Receive Date: 20091103
  Receipt Date: 20091029
  Transmission Date: 20100525
  Serious: Yes (Hospitalization)
  Sender: FDA-Public Use
  Company Number: JP-ABBOTT-09P-087-0605985-00

PATIENT
  Age: 63 Year
  Sex: Male

DRUGS (2)
  1. CLARITHROMYCIN [Suspect]
     Indication: ENTERITIS INFECTIOUS
     Route: 048
     Dates: start: 20051008, end: 20091017
  2. BIOFERMIN R [Concomitant]
     Indication: ENTERITIS INFECTIOUS
     Dates: start: 20091008, end: 20091017

REACTIONS (2)
  - DECREASED APPETITE [None]
  - DEHYDRATION [None]
